FAERS Safety Report 8591263-X (Version None)
Quarter: 2012Q3

REPORT INFORMATION
  Report Type: 
  Country: None (occurrence: None)
  Receive Date: 20120814
  Receipt Date: 20120808
  Transmission Date: 20120928
  Serious: Yes (Hospitalization)
  Sender: FDA-Public Use
  Company Number: US-AMGEN-USASP2012048961

PATIENT
  Age: 83 Year
  Sex: Female
  Weight: 47.619 kg

DRUGS (4)
  1. PROLIA [Suspect]
     Indication: OSTEOPOROSIS POSTMENOPAUSAL
     Dosage: 60 MG, UNK
     Route: 058
     Dates: start: 20120327
  2. SIMVASTATIN [Concomitant]
     Indication: BLOOD CHOLESTEROL ABNORMAL
     Route: 048
  3. LISINOPRIL [Concomitant]
     Indication: BLOOD PRESSURE ABNORMAL
     Route: 048
  4. PLAVIX [Concomitant]
     Indication: PROPHYLAXIS
     Route: 048

REACTIONS (11)
  - URINARY TRACT INFECTION [None]
  - SKIN DISORDER [None]
  - INTESTINAL OBSTRUCTION [None]
  - TOOTH DISORDER [None]
  - ARTHRALGIA [None]
  - DECREASED APPETITE [None]
  - BONE PAIN [None]
  - ASTHENIA [None]
  - MALAISE [None]
  - DIVERTICULITIS [None]
  - WEIGHT DECREASED [None]
